FAERS Safety Report 4522036-2 (Version None)
Quarter: 2004Q4

REPORT INFORMATION
  Report Type: 
  Country: None (occurrence: None)
  Receive Date: 20041206
  Receipt Date: 20040511
  Transmission Date: 20050328
  Serious: Yes (Other)
  Sender: FDA-Public Use
  Company Number: 701975

PATIENT
  Age: 30 Year
  Sex: Female

DRUGS (3)
  1. AMEVIVE [Suspect]
     Indication: PSORIASIS
     Dosage: 15 MG; QW; IM
     Route: 030
     Dates: start: 20040130, end: 20040419
  2. BIRTH CONTROL PILL [Concomitant]
  3. TOPICAL STEROID [Concomitant]

REACTIONS (4)
  - CHEILITIS [None]
  - MOUTH CYST [None]
  - SIALOADENITIS [None]
  - STOMATITIS [None]
